FAERS Safety Report 5745940-6 (Version None)
Quarter: 2008Q2

REPORT INFORMATION
  Report Type: 
  Country: None (occurrence: None)
  Receive Date: 20080520
  Receipt Date: 20080505
  Transmission Date: 20081010
  Serious: Yes (Hospitalization)
  Sender: FDA-Public Use
  Company Number: 2005BI015413

PATIENT
  Age: 44 Year
  Sex: Female

DRUGS (1)
  1. AVONEX [Suspect]
     Indication: MULTIPLE SCLEROSIS
     Dosage: IM
     Route: 030
     Dates: start: 20010629, end: 20080418

REACTIONS (6)
  - CONDITION AGGRAVATED [None]
  - FALL [None]
  - GRAND MAL CONVULSION [None]
  - HYPERTENSION [None]
  - MULTIPLE SCLEROSIS [None]
  - PERIORBITAL HAEMATOMA [None]
